FAERS Safety Report 17528365 (Version 1)
Quarter: 2020Q1

REPORT INFORMATION
  Report Type: Spontaneous
  Country: DE (occurrence: DE)
  Receive Date: 20200312
  Receipt Date: 20200312
  Transmission Date: 20200409
  Serious: Yes (Hospitalization, Other)
  Sender: FDA-Public Use
  Company Number: DE-PBT-000170

PATIENT
  Age: 55 Year

DRUGS (5)
  1. TACROLIMUS. [Suspect]
     Active Substance: TACROLIMUS
     Indication: CHRONIC HEPATITIS B
     Dosage: TWICE DAILY
     Route: 065
     Dates: start: 201412
  2. TACROLIMUS. [Suspect]
     Active Substance: TACROLIMUS
     Indication: CHRONIC HEPATITIS B
     Dosage: DAILY
     Route: 065
  3. PREDNISOLONE. [Suspect]
     Active Substance: PREDNISOLONE
     Indication: CHRONIC HEPATITIS B
     Route: 065
     Dates: start: 201412
  4. TACROLIMUS. [Suspect]
     Active Substance: TACROLIMUS
     Indication: CHRONIC HEPATITIS B
     Dosage: DAILY
     Route: 065
  5. TACROLIMUS. [Suspect]
     Active Substance: TACROLIMUS
     Indication: CHRONIC HEPATITIS B
     Route: 065
     Dates: start: 201412

REACTIONS (2)
  - Fungal infection [Recovered/Resolved]
  - Bursitis [Recovered/Resolved]
